FAERS Safety Report 23984126 (Version 1)
Quarter: 2024Q2

REPORT INFORMATION
  Report Type: Spontaneous
  Country: US (occurrence: US)
  Receive Date: 20240618
  Receipt Date: 20240618
  Transmission Date: 20240716
  Serious: No
  Sender: FDA-Public Use
  Company Number: US-002147023-NVSC2023US129564

PATIENT
  Sex: Male

DRUGS (5)
  1. CARVEDILOL [Suspect]
     Active Substance: CARVEDILOL
     Indication: Product used for unknown indication
     Route: 065
  2. ENTRESTO [Suspect]
     Active Substance: SACUBITRIL\VALSARTAN
     Indication: Product used for unknown indication
     Dosage: 1 DOSAGE FORM, BID (24/26 MG)
     Route: 065
  3. ENTRESTO [Suspect]
     Active Substance: SACUBITRIL\VALSARTAN
     Dosage: 2 DOSAGE FORM, QD (1 DOSAGE FORM, BID (24/26 MG))
     Route: 065
  4. ENTRESTO [Suspect]
     Active Substance: SACUBITRIL\VALSARTAN
     Dosage: 24 MG, BID (24/26MG 1 BID)
     Route: 065
  5. ENTRESTO [Suspect]
     Active Substance: SACUBITRIL\VALSARTAN
     Dosage: 48 MG, QD (1 DOSAGE FORM, BID (24/26 MG))
     Route: 065

REACTIONS (8)
  - Cardiac rehabilitation therapy [Unknown]
  - Arthritis [Unknown]
  - Cough [Not Recovered/Not Resolved]
  - COVID-19 [Unknown]
  - Weight decreased [Unknown]
  - Rhinorrhoea [Unknown]
  - Electrocardiogram abnormal [Unknown]
  - Throat clearing [Unknown]
